FAERS Safety Report 22136581 (Version 3)
Quarter: 2023Q2

REPORT INFORMATION
  Report Type: Spontaneous
  Country: HU (occurrence: HU)
  Receive Date: 20230324
  Receipt Date: 20230405
  Transmission Date: 20230721
  Serious: Yes (Hospitalization, Other)
  Sender: FDA-Public Use
  Company Number: HU-MYLANLABS-2023M1031203

PATIENT
  Sex: Male
  Weight: 92 kg

DRUGS (15)
  1. LYRICA [Suspect]
     Active Substance: PREGABALIN
     Indication: Anxiety
     Dosage: 75 MILLIGRAM, BID
     Route: 048
  2. LYRICA [Suspect]
     Active Substance: PREGABALIN
     Indication: Depression
     Dosage: 1500 MILLIGRAM
     Route: 065
  3. LYRICA [Suspect]
     Active Substance: PREGABALIN
     Indication: Drug dependence
     Dosage: 600 MILLIGRAM
     Route: 065
  4. LYRICA [Suspect]
     Active Substance: PREGABALIN
     Indication: Anxiety
     Dosage: 150 MILLIGRAM (10 TIMES A DAY)
     Route: 048
  5. LYRICA [Suspect]
     Active Substance: PREGABALIN
     Indication: Depression
     Dosage: 150 MILLIGRAM, QID
     Route: 048
  6. LYRICA [Suspect]
     Active Substance: PREGABALIN
     Indication: Drug dependence
     Dosage: 1950 MILLIGRAM (TOTAL)
     Route: 048
  7. LYRICA [Suspect]
     Active Substance: PREGABALIN
     Dosage: 150 MILLIGRAM, QD (FOR 4 DAYS)
     Route: 048
  8. LYRICA [Suspect]
     Active Substance: PREGABALIN
     Dosage: 150 MILLIGRAM, 8XD
     Route: 048
  9. CLOBAZAM [Concomitant]
     Active Substance: CLOBAZAM
     Dosage: UNK
     Route: 048
  10. Seduxen [Concomitant]
     Dosage: UNK
     Route: 048
  11. ESCITALOPRAM [Concomitant]
     Active Substance: ESCITALOPRAM OXALATE
     Dosage: UNK 3XW
     Route: 048
  12. BISOPROLOL FUMARATE [Concomitant]
     Active Substance: BISOPROLOL FUMARATE
     Dosage: 1.25 MILLIGRAM, QD
     Route: 048
  13. PIRACETAM [Concomitant]
     Active Substance: PIRACETAM
     Dosage: 1200 MILLIGRAM, QD
     Route: 048
  14. BUSPIRONE [Concomitant]
     Active Substance: BUSPIRONE HYDROCHLORIDE
     Dosage: UNK
     Route: 065
  15. MEDAZEPAM [Concomitant]
     Active Substance: MEDAZEPAM
     Dosage: UNK
     Route: 048

REACTIONS (18)
  - Drug dependence [Unknown]
  - Drug withdrawal syndrome [Unknown]
  - Mental disorder [Not Recovered/Not Resolved]
  - Syncope [Not Recovered/Not Resolved]
  - Drug abuse [Unknown]
  - Respiratory depression [Not Recovered/Not Resolved]
  - Asphyxia [Not Recovered/Not Resolved]
  - Anxiety [Unknown]
  - Overdose [Unknown]
  - Off label use [Unknown]
  - Photophobia [Not Recovered/Not Resolved]
  - Skin irritation [Not Recovered/Not Resolved]
  - Hypoaesthesia [Not Recovered/Not Resolved]
  - Depression [Not Recovered/Not Resolved]
  - Tremor [Not Recovered/Not Resolved]
  - Tobacco interaction [Unknown]
  - Logorrhoea [Unknown]
  - Drug tolerance [Unknown]
